FAERS Safety Report 5989684-4 (Version None)
Quarter: 2008Q4

REPORT INFORMATION
  Report Type: 
  Country: None (occurrence: None)
  Receive Date: 20081210
  Receipt Date: 20081204
  Transmission Date: 20090506
  Serious: Yes (Hospitalization, Other)
  Sender: FDA-Public Use
  Company Number: US-ROXANE LABORATORIES, INC.-2008-RO-00355RO

PATIENT
  Age: 7 Year
  Sex: Male

DRUGS (10)
  1. PREDNISONE TAB [Suspect]
     Indication: ASTHMA
     Route: 048
  2. PSEUDOEPHEDRINE HCL [Suspect]
     Indication: PRIAPISM
  3. ALBUTEROL [Suspect]
     Indication: ASTHMA
  4. RED BLOOD CELLS [Concomitant]
     Indication: HAEMOGLOBIN DECREASED
  5. ANTIBIOTICS [Concomitant]
     Indication: PAIN
  6. ANTIBIOTICS [Concomitant]
     Indication: PYREXIA
  7. ANTIBIOTICS [Concomitant]
     Indication: LUNG INFILTRATION
  8. RED CELL EXCHANGE TRANSFUSION [Concomitant]
     Indication: PAIN
  9. RED CELL EXCHANGE TRANSFUSION [Concomitant]
     Indication: PYREXIA
  10. RED CELL EXCHANGE TRANSFUSION [Concomitant]
     Indication: LUNG INFILTRATION

REACTIONS (3)
  - LUNG INFILTRATION [None]
  - PRIAPISM [None]
  - VENOOCCLUSIVE DISEASE [None]
